FAERS Safety Report 15279277 (Version 2)
Quarter: 2018Q3

REPORT INFORMATION
  Report Type: Report from Study
  Country: US (occurrence: US)
  Receive Date: 20180815
  Receipt Date: 20180824
  Transmission Date: 20181010
  Serious: Yes (Hospitalization, Other)
  Sender: FDA-Public Use
  Company Number: US-BRISTOL-MYERS SQUIBB COMPANY-BMS-2018-072588

PATIENT
  Sex: Female

DRUGS (1)
  1. ABATACEPT [Suspect]
     Active Substance: ABATACEPT
     Indication: RHEUMATOID ARTHRITIS
     Route: 065

REACTIONS (7)
  - Feeling abnormal [Unknown]
  - Fall [Unknown]
  - Meniscus injury [Unknown]
  - Bone fragmentation [Unknown]
  - Arthralgia [Unknown]
  - Pain in extremity [Unknown]
  - Arthropathy [Unknown]
